FAERS Safety Report 11699860 (Version 1)
Quarter: 2015Q4

REPORT INFORMATION
  Report Type: Report from Study
  Country: US (occurrence: None)
  Receive Date: 20151103
  Receipt Date: 20151103
  Transmission Date: 20160304
  Serious: Yes (Hospitalization)
  Sender: FDA-Public Use
  Company Number: 2015UCU075000260

PATIENT
  Age: 24 Year
  Sex: Male
  Weight: 65.77 kg

DRUGS (14)
  1. INFLIXIMAB [Concomitant]
     Active Substance: INFLIXIMAB
  2. ENTYVIO [Concomitant]
     Active Substance: VEDOLIZUMAB
  3. LEVAQUIN [Concomitant]
     Active Substance: LEVOFLOXACIN
  4. VEDOLIZUMAB [Suspect]
     Active Substance: VEDOLIZUMAB
     Route: 042
     Dates: start: 20150225
  5. PREDNISONE. [Concomitant]
     Active Substance: PREDNISONE
  6. METHOTREXATE [Suspect]
     Active Substance: METHOTREXATE
     Dates: start: 20140905, end: 20150501
  7. FOLIC ACID. [Concomitant]
     Active Substance: FOLIC ACID
  8. LIALDA [Concomitant]
     Active Substance: MESALAMINE
  9. CEFTRIAXONE. [Concomitant]
     Active Substance: CEFTRIAXONE
  10. CIMZIA [Suspect]
     Active Substance: CERTOLIZUMAB PEGOL
     Indication: CROHN^S DISEASE
     Dates: start: 20140714, end: 20141202
  11. MESALAMINE. [Concomitant]
     Active Substance: MESALAMINE
  12. CANASA [Concomitant]
     Active Substance: MESALAMINE
  13. LEVOFLOXACIN. [Concomitant]
     Active Substance: LEVOFLOXACIN
  14. AZITHROMYCIN [Concomitant]
     Active Substance: AZITHROMYCIN ANHYDROUS

REACTIONS (2)
  - Lung infiltration [None]
  - Pneumonia [None]

NARRATIVE: CASE EVENT DATE: 20151011
